FAERS Safety Report 25273552 (Version 1)
Quarter: 2025Q2

REPORT INFORMATION
  Report Type: Spontaneous
  Country: MX (occurrence: MX)
  Receive Date: 20250506
  Receipt Date: 20250506
  Transmission Date: 20250716
  Serious: Yes (Hospitalization)
  Sender: MERCK SHARP & DOHME LLC
  Company Number: MX-009507513-2276747

PATIENT
  Age: 58 Year
  Sex: Male
  Weight: 77.8 kg

DRUGS (4)
  1. EMEND [Suspect]
     Active Substance: APREPITANT
     Indication: Premedication
     Dosage: 150MG (IN 150ML OF 0.9% SALINE SOLUTION FOR 20 MIN) EVERY 3 WEEKS
     Route: 042
     Dates: start: 20250219
  2. CLOROPIRAMINA [Concomitant]
     Indication: Premedication
     Route: 042
  3. DEXAMETHASONE [Concomitant]
     Active Substance: DEXAMETHASONE
     Indication: Premedication
     Route: 042
  4. PALONOSETRON [Concomitant]
     Active Substance: PALONOSETRON
     Indication: Premedication
     Route: 042

REACTIONS (5)
  - Nausea [Recovered/Resolved]
  - Ill-defined disorder [Recovered/Resolved]
  - Ocular hyperaemia [Recovered/Resolved]
  - Hypertension [Recovered/Resolved]
  - Neck pain [Recovered/Resolved]

NARRATIVE: CASE EVENT DATE: 20250311
